FAERS Safety Report 11909735 (Version 1)
Quarter: 2016Q1

REPORT INFORMATION
  Report Type: Spontaneous
  Country: US (occurrence: None)
  Receive Date: 20160111
  Receipt Date: 20160111
  Transmission Date: 20160526
  Serious: Yes (Life-Threatening, Other)
  Sender: FDA-Public Use
  Company Number: None

PATIENT
  Age: 12 Year
  Sex: Male

DRUGS (4)
  1. MULTI-VITAMINS [Concomitant]
  2. PEPCID [Concomitant]
     Active Substance: FAMOTIDINE
  3. FLUOXETINE HCL [Suspect]
     Active Substance: FLUOXETINE HYDROCHLORIDE
     Indication: OBSESSIVE-COMPULSIVE DISORDER
     Dosage: 1 PILLS ONCE DAILY
     Route: 048
     Dates: start: 20151223, end: 20160109
  4. BENDRYL [Concomitant]

REACTIONS (2)
  - Visual impairment [None]
  - Diet refusal [None]

NARRATIVE: CASE EVENT DATE: 20160108
